FAERS Safety Report 8122177-7 (Version None)
Quarter: 2012Q1

REPORT INFORMATION
  Report Type: 
  Country: None (occurrence: None)
  Receive Date: 20120208
  Receipt Date: 20120127
  Transmission Date: 20120608
  Serious: Yes (Hospitalization)
  Sender: FDA-Public Use
  Company Number: CA-ROCHE-1034397

PATIENT
  Sex: Female
  Weight: 81 kg

DRUGS (14)
  1. PREDNISONE [Concomitant]
     Dosage: DOSE INCREASED
  2. HYDROXYCHLOROQUINE SULFATE [Concomitant]
  3. CELEBREX [Concomitant]
  4. PREDNISONE [Concomitant]
     Dosage: DOSE UNKNOWN
  5. METOPROLOL [Concomitant]
  6. MULTI-VITAMIN [Concomitant]
  7. RABEPRAZOLE SODIUM [Concomitant]
  8. LISINOPRIL [Concomitant]
  9. CALCIUM [Concomitant]
  10. ACTEMRA [Suspect]
     Indication: RHEUMATOID ARTHRITIS
     Route: 042
     Dates: start: 20110204, end: 20111202
  11. METHOTREXATE [Concomitant]
  12. VITAMIN D [Concomitant]
  13. HYDROCHLOROTHIAZIDE [Concomitant]
  14. FOLIC ACID [Concomitant]

REACTIONS (1)
  - RHEUMATOID ARTHRITIS [None]
